FAERS Safety Report 23761390 (Version 1)
Quarter: 2024Q2

REPORT INFORMATION
  Report Type: Spontaneous
  Country: US (occurrence: None)
  Receive Date: 20240418
  Receipt Date: 20240418
  Transmission Date: 20240716
  Serious: No
  Sender: FDA-Public Use
  Company Number: None

PATIENT
  Age: 61 Year
  Sex: Female
  Weight: 102 kg

DRUGS (1)
  1. DIMETHYL FUMARATE [Suspect]
     Active Substance: DIMETHYL FUMARATE
     Indication: Multiple sclerosis
     Dosage: 120-240 MILLIGRAMS- MG 120 BID FOR 7 DAYS, THEN 240MG BID  ORAL?
     Route: 048
     Dates: start: 20240313, end: 20240418

REACTIONS (2)
  - Palpitations [None]
  - Refusal of treatment by patient [None]

NARRATIVE: CASE EVENT DATE: 20240418
